FAERS Safety Report 18258129 (Version 1)
Quarter: 2020Q3

REPORT INFORMATION
  Report Type: Report from Study
  Country: CA (occurrence: CA)
  Receive Date: 20200911
  Receipt Date: 20200911
  Transmission Date: 20201103
  Serious: Yes (Other)
  Sender: FDA-Public Use
  Company Number: CA-JNJFOC-20200202737

PATIENT
  Age: 17 Year
  Sex: Female
  Weight: 60.2 kg

DRUGS (3)
  1. REMICADE [Suspect]
     Active Substance: INFLIXIMAB
     Indication: PSORIASIS
  2. REMICADE [Suspect]
     Active Substance: INFLIXIMAB
     Indication: CROHN^S DISEASE
     Route: 042
  3. REMICADE [Suspect]
     Active Substance: INFLIXIMAB
     Indication: JUVENILE IDIOPATHIC ARTHRITIS
     Dosage: ALSO INFUSION RECEIVED ON 29/SEP/2017, LAST INFUSION: 30?JAN?2020
     Route: 042
     Dates: start: 20170620

REACTIONS (5)
  - Psoriasis [Unknown]
  - Arthritis [Recovering/Resolving]
  - Haematochezia [Unknown]
  - Diarrhoea [Unknown]
  - Sinusitis [Recovered/Resolved]

NARRATIVE: CASE EVENT DATE: 20200108
